FAERS Safety Report 5236733-7 (Version None)
Quarter: 2007Q1

REPORT INFORMATION
  Report Type: 
  Country: None (occurrence: None)
  Receive Date: 20070213
  Receipt Date: 20070206
  Transmission Date: 20070707
  Serious: Yes (Hospitalization, Other)
  Sender: FDA-Public Use
  Company Number: 2007UW02626

PATIENT
  Age: 64 Year
  Sex: Male

DRUGS (6)
  1. CRESTOR [Suspect]
     Route: 048
  2. CASODEX [Suspect]
     Route: 048
  3. COUMADIN [Suspect]
  4. NORVASC [Suspect]
  5. LOTENSIN [Suspect]
  6. FLOXMAX [Suspect]

REACTIONS (6)
  - BLOOD CREATINE PHOSPHOKINASE INCREASED [None]
  - HEPATIC FAILURE [None]
  - RENAL FAILURE [None]
  - RHABDOMYOLYSIS [None]
  - URINARY TRACT INFECTION [None]
  - URINARY TRACT OBSTRUCTION [None]
